FAERS Safety Report 17243297 (Version 2)
Quarter: 2020Q1

REPORT INFORMATION
  Report Type: Report from Study
  Country: US (occurrence: US)
  Receive Date: 20200107
  Receipt Date: 20200113
  Transmission Date: 20200409
  Serious: No
  Sender: FDA-Public Use
  Company Number: US-BAUSCH-BL-2020-000284

PATIENT
  Age: 67 Year
  Sex: Male

DRUGS (1)
  1. XIFAXAN [Suspect]
     Active Substance: RIFAXIMIN
     Indication: HEPATIC CIRRHOSIS
     Route: 065
     Dates: start: 201911, end: 20191215

REACTIONS (4)
  - Confusional state [Not Recovered/Not Resolved]
  - Therapy cessation [Unknown]
  - Thinking abnormal [Not Recovered/Not Resolved]
  - Ammonia increased [Not Recovered/Not Resolved]

NARRATIVE: CASE EVENT DATE: 20191215
